FAERS Safety Report 12042695 (Version 1)
Quarter: 2016Q1

REPORT INFORMATION
  Report Type: Spontaneous
  Country: US (occurrence: US)
  Receive Date: 20160208
  Receipt Date: 20160208
  Transmission Date: 20160526
  Serious: Yes (Hospitalization)
  Sender: FDA-Public Use
  Company Number: US-PFIZER INC-2016066904

PATIENT
  Age: 49 Year
  Sex: Female
  Weight: 64 kg

DRUGS (6)
  1. DIPHENHYDRAMINE. [Concomitant]
     Active Substance: DIPHENHYDRAMINE
     Indication: HYPERSENSITIVITY
     Dosage: 25 MG, AS NEEDED
  2. VITAMIN C [Concomitant]
     Active Substance: ASCORBIC ACID
     Indication: VITAMIN SUPPLEMENTATION
     Dosage: 500 MG, 1X/DAY
     Route: 048
  3. DUAVEE [Suspect]
     Active Substance: BAZEDOXIFENE ACETATE\ESTROGENS, CONJUGATED
     Dosage: 0.45 MG/20 MG, 1X/DAY
     Route: 048
     Dates: start: 20160124
  4. MILK THISTLE [Concomitant]
     Active Substance: MILK THISTLE
     Indication: VITAMIN SUPPLEMENTATION
     Dosage: 1000 MG, 1X/DAY
     Route: 048
  5. DUAVEE [Suspect]
     Active Substance: BAZEDOXIFENE ACETATE\ESTROGENS, CONJUGATED
     Indication: MENOPAUSAL SYMPTOMS
     Dosage: UNK
     Route: 048
     Dates: start: 201506
  6. VITAMIN D3 [Concomitant]
     Active Substance: CHOLECALCIFEROL
     Indication: VITAMIN SUPPLEMENTATION
     Dosage: 400 IU, 1X/DAY

REACTIONS (3)
  - Product quality issue [Unknown]
  - Drug ineffective [Not Recovered/Not Resolved]
  - Pneumonia bacterial [Recovered/Resolved]

NARRATIVE: CASE EVENT DATE: 2015
